FAERS Safety Report 11614956 (Version 1)
Quarter: 2015Q4

REPORT INFORMATION
  Report Type: Spontaneous
  Country: US (occurrence: None)
  Receive Date: 20151007
  Receipt Date: 20151007
  Transmission Date: 20160304
  Serious: Yes (Hospitalization)
  Sender: FDA-Public Use
  Company Number: 1713747-2015-999360

PATIENT
  Age: 63 Year
  Sex: Male
  Weight: 145 kg

DRUGS (19)
  1. HYDROXYCHLOROQUINE [Concomitant]
     Active Substance: HYDROXYCHLOROQUINE
  2. SALINE 0.9% 1 LITER [Suspect]
     Active Substance: SODIUM CHLORIDE
     Indication: HAEMODIALYSIS
     Dates: end: 20150828
  3. OPTIFLUX DIALYZER [Concomitant]
     Active Substance: DEVICE
  4. NATURTALYTE DRY PACK [Concomitant]
  5. ALLOPURINOL. [Concomitant]
     Active Substance: ALLOPURINOL
  6. GRANUFLO 2251 [Concomitant]
  7. K2 [Concomitant]
     Active Substance: JWH-018
  8. GABAPENTIN. [Concomitant]
     Active Substance: GABAPENTIN
  9. CALCITRIOL. [Concomitant]
     Active Substance: CALCITRIOL
  10. AMIODARONE [Concomitant]
     Active Substance: AMIODARONE
  11. DILTIAZEM [Concomitant]
     Active Substance: DILTIAZEM
  12. OXYCODONE-ACETAMINOPHEN [Concomitant]
     Active Substance: ACETAMINOPHEN\OXYCODONE HYDROCHLORIDE
  13. SALINE 0.9% 1 LITER [Suspect]
     Active Substance: SODIUM CHLORIDE
     Indication: CHRONIC KIDNEY DISEASE
     Dates: end: 20150828
  14. SERTRALINE [Concomitant]
     Active Substance: SERTRALINE HYDROCHLORIDE
  15. TRAZODONE [Concomitant]
     Active Substance: TRAZODONE HYDROCHLORIDE
  16. COMBISET 8MM PRE-2 VENOUS INJECT SITES [Concomitant]
  17. LEVEMIR [Concomitant]
     Active Substance: INSULIN DETEMIR
  18. TAMSULOSIN [Concomitant]
     Active Substance: TAMSULOSIN
  19. ATORVASTATIN [Concomitant]
     Active Substance: ATORVASTATIN

REACTIONS (1)
  - Cardio-respiratory arrest [None]

NARRATIVE: CASE EVENT DATE: 20150805
